FAERS Safety Report 25904239 (Version 1)
Quarter: 2025Q4

REPORT INFORMATION
  Report Type: Spontaneous
  Country: EU (occurrence: EU)
  Receive Date: 20251010
  Receipt Date: 20251010
  Transmission Date: 20260117
  Serious: Yes (Other)
  Sender: CELLTRION
  Company Number: EU-AMGEN-ESPSP2025191408

PATIENT

DRUGS (4)
  1. USTEKINUMAB [Suspect]
     Active Substance: USTEKINUMAB
     Indication: Dermatitis atopic
     Dosage: DOSAGE1: UNIT=NOT AVAILABLE
     Route: 065
  2. USTEKINUMAB [Suspect]
     Active Substance: USTEKINUMAB
     Indication: Pityriasis rubra pilaris
  3. DUPILUMAB [Concomitant]
     Active Substance: DUPILUMAB
  4. ACITRETIN [Concomitant]
     Active Substance: ACITRETIN

REACTIONS (3)
  - Cutaneous T-cell lymphoma [Unknown]
  - Therapy non-responder [Unknown]
  - Off label use [Unknown]
